FAERS Safety Report 4335331-7 (Version None)
Quarter: 2004Q2

REPORT INFORMATION
  Report Type: 
  Country: None (occurrence: None)
  Receive Date: 20040408
  Receipt Date: 20040408
  Transmission Date: 20050107
  Serious: Yes (Hospitalization)
  Sender: FDA-Public Use
  Company Number: None

PATIENT
  Age: 30 Year
  Sex: Female
  Weight: 69 kg

DRUGS (14)
  1. DOCETAXEL [Suspect]
     Indication: BREAST CANCER
     Dosage: 75 MG IV Q 3 WEEKS
     Route: 042
     Dates: start: 20040123
  2. DOCETAXEL [Suspect]
     Indication: BREAST CANCER
     Dosage: 75 MG IV Q 3 WEEKS
     Route: 042
     Dates: start: 20040213
  3. DOCETAXEL [Suspect]
     Indication: BREAST CANCER
     Dosage: 75 MG IV Q 3 WEEKS
     Route: 042
     Dates: start: 20040306
  4. DOCETAXEL [Suspect]
     Indication: BREAST CANCER
     Dosage: 75 MG IV Q 3 WEEKS
     Route: 042
     Dates: start: 20040326
  5. CARBOPLATIN [Suspect]
     Indication: BREAST CANCER
     Dosage: AUC 6 Q 3 WEEKS
     Dates: start: 20040123
  6. CARBOPLATIN [Suspect]
     Indication: BREAST CANCER
     Dosage: AUC 6 Q 3 WEEKS
     Dates: start: 20040213
  7. CARBOPLATIN [Suspect]
     Indication: BREAST CANCER
     Dosage: AUC 6 Q 3 WEEKS
     Dates: start: 20040306
  8. CARBOPLATIN [Suspect]
     Indication: BREAST CANCER
     Dosage: AUC 6 Q 3 WEEKS
     Dates: start: 20040326
  9. HERCEPTIN [Suspect]
     Indication: BREAST CANCER
     Dosage: 2 MG IV Q 1 WEEK 1/9/04-CONTINUING
     Route: 042
     Dates: start: 20040109
  10. ATIVAN [Concomitant]
  11. COMPAZINE [Concomitant]
  12. ZOFRAN [Concomitant]
  13. DECADRON [Concomitant]
  14. CIPROFLOXACIN [Concomitant]

REACTIONS (1)
  - FEBRILE NEUTROPENIA [None]
